FAERS Safety Report 7702852-6 (Version None)
Quarter: 2011Q3

REPORT INFORMATION
  Report Type: 
  Country: None (occurrence: None)
  Receive Date: 20110817
  Receipt Date: 20110809
  Transmission Date: 20111222
  Serious: Yes (Death)
  Sender: FDA-Public Use
  Company Number: JPI-P-014798

PATIENT
  Age: 61 Year

DRUGS (1)
  1. XYREM [Suspect]
     Indication: SLEEP DISORDER
     Dosage: 9 GM (4.5 GM 2 IN 1 D), ORAL
     Route: 048
     Dates: start: 20040223, end: 20080520

REACTIONS (1)
  - DEATH [None]
